FAERS Safety Report 25620342 (Version 1)
Quarter: 2025Q3

REPORT INFORMATION
  Report Type: Spontaneous
  Country: CN (occurrence: CN)
  Receive Date: 20250730
  Receipt Date: 20250730
  Transmission Date: 20251020
  Serious: Yes (Hospitalization, Disabling, Other)
  Sender: BRISTOL-MYERS SQUIBB COMPANY
  Company Number: CN-BRISTOL-MYERS SQUIBB COMPANY-2025-104579

PATIENT
  Age: 69 Year
  Sex: Male
  Weight: 65 kg

DRUGS (22)
  1. OPDIVO [Suspect]
     Active Substance: NIVOLUMAB
     Indication: Gastric cancer
     Route: 041
     Dates: start: 20250211
  2. OPDIVO [Suspect]
     Active Substance: NIVOLUMAB
     Route: 041
     Dates: start: 20250306
  3. OPDIVO [Suspect]
     Active Substance: NIVOLUMAB
     Route: 041
     Dates: start: 20250327
  4. OPDIVO [Suspect]
     Active Substance: NIVOLUMAB
     Route: 041
     Dates: start: 20250418
  5. OPDIVO [Suspect]
     Active Substance: NIVOLUMAB
     Route: 041
     Dates: start: 20250509
  6. OPDIVO [Suspect]
     Active Substance: NIVOLUMAB
     Route: 041
     Dates: start: 20250531
  7. OPDIVO [Suspect]
     Active Substance: NIVOLUMAB
     Route: 041
     Dates: start: 20250623
  8. OPDIVO [Suspect]
     Active Substance: NIVOLUMAB
     Route: 041
     Dates: start: 20250714, end: 20250714
  9. ELOXATIN [Concomitant]
     Active Substance: OXALIPLATIN
     Indication: Gastric cancer
     Route: 041
     Dates: start: 20250211
  10. ELOXATIN [Concomitant]
     Active Substance: OXALIPLATIN
     Route: 041
     Dates: start: 20250306
  11. ELOXATIN [Concomitant]
     Active Substance: OXALIPLATIN
     Route: 041
     Dates: start: 20250327
  12. ELOXATIN [Concomitant]
     Active Substance: OXALIPLATIN
     Route: 041
     Dates: start: 20250418
  13. ELOXATIN [Concomitant]
     Active Substance: OXALIPLATIN
     Route: 041
     Dates: start: 20250509
  14. ELOXATIN [Concomitant]
     Active Substance: OXALIPLATIN
     Route: 041
     Dates: start: 20250531, end: 20250531
  15. XELODA [Concomitant]
     Active Substance: CAPECITABINE
     Indication: Gastric cancer
     Dosage: D1-14
     Dates: start: 20250211
  16. XELODA [Concomitant]
     Active Substance: CAPECITABINE
     Dosage: D1-14
     Dates: start: 20250306
  17. XELODA [Concomitant]
     Active Substance: CAPECITABINE
     Dosage: D1-14
     Dates: start: 20250327
  18. XELODA [Concomitant]
     Active Substance: CAPECITABINE
     Dosage: D1-14
     Dates: start: 20250418
  19. XELODA [Concomitant]
     Active Substance: CAPECITABINE
     Dosage: D1-14
     Dates: start: 20250509
  20. XELODA [Concomitant]
     Active Substance: CAPECITABINE
     Dosage: D1-14
     Dates: start: 20250531
  21. XELODA [Concomitant]
     Active Substance: CAPECITABINE
     Dosage: D1-14
     Dates: start: 20250623
  22. XELODA [Concomitant]
     Active Substance: CAPECITABINE
     Dosage: D1-14
     Dates: start: 20250714, end: 20250714

REACTIONS (2)
  - Diabetes mellitus [Recovered/Resolved with Sequelae]
  - Off label use [Unknown]

NARRATIVE: CASE EVENT DATE: 20250714
